FAERS Safety Report 6652004-6 (Version None)
Quarter: 2010Q1

REPORT INFORMATION
  Report Type: 
  Country: None (occurrence: None)
  Receive Date: 20100325
  Receipt Date: 20100316
  Transmission Date: 20100710
  Serious: Yes (Hospitalization)
  Sender: FDA-Public Use
  Company Number: AT-ABBOTT-10P-009-0632599-00

PATIENT
  Age: 27 Year
  Sex: Male

DRUGS (10)
  1. ZEMPLAR [Suspect]
     Indication: DRUG USE FOR UNKNOWN INDICATION
  2. RENAGEL [Concomitant]
     Indication: DRUG USE FOR UNKNOWN INDICATION
  3. RENAGEL [Concomitant]
     Dosage: 2-0-2
  4. AERIUS [Concomitant]
     Indication: DRUG USE FOR UNKNOWN INDICATION
     Dosage: 0-0-1
  5. AERIUS [Concomitant]
     Dosage: 1-0-1
  6. ARANESP [Concomitant]
     Indication: DRUG USE FOR UNKNOWN INDICATION
  7. FERRLECIT [Concomitant]
     Indication: DRUG USE FOR UNKNOWN INDICATION
  8. AGAFFIN [Concomitant]
     Indication: DRUG USE FOR UNKNOWN INDICATION
     Dosage: 2 TABLESPOONS DAILY
     Dates: start: 20100115
  9. PANTOPRAZOLE [Concomitant]
     Indication: DRUG USE FOR UNKNOWN INDICATION
     Dosage: 1-0-0
     Dates: start: 20100115
  10. MEXALEN [Concomitant]
     Indication: PAIN
     Dosage: 1-1-1
     Dates: start: 20100115

REACTIONS (2)
  - HAEMORRHOIDS [None]
  - POST PROCEDURAL HAEMORRHAGE [None]
